FAERS Safety Report 13863365 (Version 3)
Quarter: 2017Q3

REPORT INFORMATION
  Report Type: Spontaneous
  Country: US (occurrence: US)
  Receive Date: 20170814
  Receipt Date: 20170920
  Transmission Date: 20171127
  Serious: Yes (Death, Hospitalization)
  Sender: FDA-Public Use
  Company Number: US-PFIZER INC-2017211337

PATIENT
  Age: 6 Year
  Sex: Male

DRUGS (1)
  1. CRIZOTINIB [Suspect]
     Active Substance: CRIZOTINIB
     Indication: NEUROBLASTOMA
     Dosage: 200 MG, 2X/DAY
     Route: 048
     Dates: start: 20170515, end: 20170718

REACTIONS (7)
  - Pyrexia [Unknown]
  - Gastric ulcer [Unknown]
  - Abdominal discomfort [Recovering/Resolving]
  - Product use in unapproved indication [Unknown]
  - Neoplasm progression [Recovering/Resolving]
  - Headache [Unknown]
  - Sepsis [Fatal]

NARRATIVE: CASE EVENT DATE: 20170515
